FAERS Safety Report 8956593 (Version 1)
Quarter: 2012Q4

REPORT INFORMATION
  Report Type: Report from Study
  Country: CA (occurrence: CA)
  Receive Date: 20121210
  Receipt Date: 20121210
  Transmission Date: 20130627
  Serious: Yes (Hospitalization, Other)
  Sender: FDA-Public Use
  Company Number: CA-JNJFOC-20121115268

PATIENT
  Sex: Female
  Weight: 54.43 kg

DRUGS (3)
  1. REMICADE [Suspect]
     Indication: CROHN^S DISEASE
     Route: 042
  2. PREDNISONE [Concomitant]
     Route: 065
  3. VITAMINS NOS [Concomitant]
     Route: 065

REACTIONS (5)
  - Intestinal resection [Unknown]
  - Diarrhoea [Unknown]
  - Vomiting [Unknown]
  - Intestinal obstruction [Unknown]
  - Weight increased [Unknown]
